FAERS Safety Report 7789168-7 (Version None)
Quarter: 2011Q3

REPORT INFORMATION
  Report Type: 
  Country: None (occurrence: None)
  Receive Date: 20110930
  Receipt Date: 20110925
  Transmission Date: 20111222
  Serious: Yes (Other)
  Sender: FDA-Public Use
  Company Number: IN-PFIZER INC-2011228091

PATIENT
  Age: 65 Year
  Sex: Female

DRUGS (1)
  1. AROMASIN [Suspect]
     Indication: BREAST CANCER
     Dosage: 25 MG, UNK
     Route: 048
     Dates: start: 20110701, end: 20110924

REACTIONS (9)
  - DECREASED APPETITE [None]
  - OROPHARYNGEAL PAIN [None]
  - CONSTIPATION [None]
  - DEPRESSION [None]
  - INSOMNIA [None]
  - PYREXIA [None]
  - LIMB DISCOMFORT [None]
  - MALAISE [None]
  - ALOPECIA [None]
